FAERS Safety Report 23199710 (Version 1)
Quarter: 2023Q4

REPORT INFORMATION
  Report Type: Spontaneous
  Country: US (occurrence: GB)
  Receive Date: 20231117
  Receipt Date: 20231117
  Transmission Date: 20240109
  Serious: No
  Sender: FDA-Public Use
  Company Number: US-Stemline Therapeutics, Inc.-2023ST003063

PATIENT
  Age: 81 Year
  Sex: Female

DRUGS (18)
  1. ORSERDU [Suspect]
     Active Substance: ELACESTRANT
     Indication: Product used for unknown indication
     Dosage: 345MG ONCE DAILY
     Route: 048
     Dates: start: 202307
  2. ALPRAZOLAM [Concomitant]
     Active Substance: ALPRAZOLAM
  3. CLONIDINE [Concomitant]
     Active Substance: CLONIDINE
  4. DEXAMETHASONE [Concomitant]
     Active Substance: DEXAMETHASONE
  5. DICYCLOMINE [Concomitant]
     Active Substance: DICYCLOMINE HYDROCHLORIDE
  6. FELODIPINE [Concomitant]
     Active Substance: FELODIPINE
  7. FULVESTRANT [Concomitant]
     Active Substance: FULVESTRANT
  8. GLIPIZIDE [Concomitant]
     Active Substance: GLIPIZIDE
  9. IBRANCE [Concomitant]
     Active Substance: PALBOCICLIB
  10. METFORMIN [Concomitant]
     Active Substance: METFORMIN HYDROCHLORIDE
  11. METHYLPREDNISOLONE [Concomitant]
     Active Substance: METHYLPREDNISOLONE
  12. METOPROLOL [Concomitant]
     Active Substance: METOPROLOL
  13. VITAMINS NOS [Concomitant]
     Active Substance: VITAMINS
  14. OMEPRAZOLE [Concomitant]
     Active Substance: OMEPRAZOLE
  15. ONDANSETRON [Concomitant]
     Active Substance: ONDANSETRON
  16. REPAGLINIDE [Concomitant]
     Active Substance: REPAGLINIDE
  17. TRAMADOL [Concomitant]
     Active Substance: TRAMADOL\TRAMADOL HYDROCHLORIDE
  18. XGEVA [Concomitant]
     Active Substance: DENOSUMAB

REACTIONS (1)
  - Haemoglobin decreased [Recovering/Resolving]
